FAERS Safety Report 6050982-X (Version None)
Quarter: 2009Q1

REPORT INFORMATION
  Report Type: 
  Country: None (occurrence: None)
  Receive Date: 20090126
  Receipt Date: 20080930
  Transmission Date: 20090719
  Serious: No
  Sender: FDA-Public Use
  Company Number: US-TYCO HEALTHCARE/MALLINCKRODT-T200801602

PATIENT

DRUGS (1)
  1. OPTIRAY 300 [Suspect]
     Indication: COMPUTERISED TOMOGRAM
     Dosage: 50 ML (CC), SINGLE
     Route: 042
     Dates: start: 20080929, end: 20080929

REACTIONS (3)
  - NASAL CONGESTION [None]
  - RASH [None]
  - WHEEZING [None]
